FAERS Safety Report 4442762-3 (Version None)
Quarter: 2004Q3

REPORT INFORMATION
  Report Type: 
  Country: None (occurrence: None)
  Receive Date: 20040903
  Receipt Date: 20040614
  Transmission Date: 20050211
  Serious: Yes (Other)
  Sender: FDA-Public Use
  Company Number: 2004UW12292

PATIENT
  Age: 47 Year
  Sex: Female
  Weight: 113.3993 kg

DRUGS (8)
  1. CRESTOR [Suspect]
     Indication: BLOOD CHOLESTEROL INCREASED
     Dates: start: 20040101
  2. GLUCOPHAGE [Concomitant]
  3. AVANDIA [Concomitant]
  4. SINGULAIR ^DIECKMANN^ [Concomitant]
  5. GLYBURIDE [Concomitant]
  6. DIOVAN ^CIBA-GEICY^ [Concomitant]
  7. ZYRTEC [Concomitant]
  8. RESCUE INHALER [Concomitant]

REACTIONS (1)
  - BLISTER [None]
